FAERS Safety Report 8988635 (Version 1)
Quarter: 2012Q4

REPORT INFORMATION
  Report Type: Spontaneous
  Country: GB (occurrence: None)
  Receive Date: 20121219
  Receipt Date: 20121219
  Transmission Date: 20130627
  Serious: Yes (Death, Life-Threatening, Hospitalization, Other)
  Sender: FDA-Public Use
  Company Number: 2012R1-63391

PATIENT
  Age: 49 Year
  Sex: Male

DRUGS (6)
  1. CIPROFLOXACIN (CIPROFLOXACIN) [Suspect]
     Indication: PROSTATITIS
     Route: 048
     Dates: start: 20091123, end: 20100113
  2. CLARITHROMYCIN (CLARITHROMYCIN) [Suspect]
     Indication: DRUG USE FOR UNKNOWN INDICATION
     Dates: start: 20091204
  3. AMOXICILLIN\CLAVULANATE POTASSIUM [Suspect]
     Indication: DRUG USE FOR UNKNOWN INDICATION
  4. NAPROXEN [Suspect]
     Indication: DRUG USE FOR UNKNOWN INDICATION
     Dates: start: 20091204
  5. OFLOXACIN [Suspect]
     Indication: PROSTATITIS
     Route: 048
  6. TRIMETHOPRIM [Suspect]
     Indication: PROSTATITIS

REACTIONS (81)
  - Anxiety [None]
  - Drug hypersensitivity [None]
  - Dyspnoea [None]
  - Chest pain [None]
  - Decreased appetite [None]
  - Arrhythmia [None]
  - Arthralgia [None]
  - Balance disorder [None]
  - Agitation [None]
  - Anhedonia [None]
  - Anxiety [None]
  - Atrophy [None]
  - Bone pain [None]
  - Burning sensation [None]
  - Cognitive disorder [None]
  - Constipation [None]
  - Depression [None]
  - Diarrhoea [None]
  - Dysaesthesia [None]
  - Paraesthesia [None]
  - Muscle contractions involuntary [None]
  - Fatigue [None]
  - Feeling abnormal [None]
  - Fibromyalgia [None]
  - Pain [None]
  - Headache [None]
  - Headache [None]
  - Hyperacusis [None]
  - Hypoaesthesia [None]
  - Insomnia [None]
  - Malaise [None]
  - Mental disorder [None]
  - Motion sickness [None]
  - Muscle spasms [None]
  - Muscle atrophy [None]
  - Nausea [None]
  - Neck pain [None]
  - Neuralgia [None]
  - Neuropathy peripheral [None]
  - Pain in extremity [None]
  - Palpitations [None]
  - Panic reaction [None]
  - Rash papular [None]
  - Paraesthesia [None]
  - Post-traumatic stress disorder [None]
  - Prostatitis [None]
  - Convulsion [None]
  - Tremor [None]
  - Speech disorder [None]
  - Musculoskeletal stiffness [None]
  - Musculoskeletal stiffness [None]
  - Dysphagia [None]
  - Tachycardia [None]
  - Throat tightness [None]
  - Tinnitus [None]
  - Asthenia [None]
  - Weight decreased [None]
  - Muscle contractions involuntary [None]
  - Musculoskeletal stiffness [None]
  - Completed suicide [None]
  - Tremor [None]
  - Gait disturbance [None]
  - Muscle twitching [None]
  - Gastrointestinal pain [None]
  - Feeling abnormal [None]
  - Aphasia [None]
  - Heart sounds abnormal [None]
  - Lymphadenopathy [None]
  - Wheezing [None]
  - Liver palpable subcostal [None]
  - Liver tenderness [None]
  - Mechanical urticaria [None]
  - Potentiating drug interaction [None]
  - Toxicity to various agents [None]
  - Overdose [None]
  - Pyrexia [None]
  - Pelvic pain [None]
  - Confusional state [None]
  - Ototoxicity [None]
  - Tendonitis [None]
  - Inadequate analgesia [None]
